FAERS Safety Report 23816949 (Version 1)
Quarter: 2024Q2

REPORT INFORMATION
  Report Type: Spontaneous
  Country: US (occurrence: US)
  Receive Date: 20240504
  Receipt Date: 20240504
  Transmission Date: 20240716
  Serious: No
  Sender: FDA-Public Use
  Company Number: US-002147023-NVSC2024US091634

PATIENT
  Age: 41 Year
  Sex: Female

DRUGS (2)
  1. ILARIS [Suspect]
     Active Substance: CANAKINUMAB
     Indication: Urticaria
     Dosage: UNK
     Route: 065
     Dates: start: 20240309, end: 20240310
  2. ILARIS [Suspect]
     Active Substance: CANAKINUMAB
     Indication: Swelling face

REACTIONS (2)
  - Swelling face [Recovered/Resolved with Sequelae]
  - Urticaria [Recovered/Resolved with Sequelae]

NARRATIVE: CASE EVENT DATE: 20240309
